FAERS Safety Report 6906140-7 (Version None)
Quarter: 2010Q3

REPORT INFORMATION
  Report Type: 
  Country: None (occurrence: None)
  Receive Date: 20100802
  Receipt Date: 20100726
  Transmission Date: 20110219
  Serious: Yes (Hospitalization)
  Sender: FDA-Public Use
  Company Number: 2010SP040864

PATIENT
  Sex: Female

DRUGS (2)
  1. MIRTAZAPINE [Suspect]
     Indication: DEPRESSION
     Dosage: PO
     Route: 048
     Dates: start: 20100501, end: 20100601
  2. MIRTAZAPINE [Suspect]
     Indication: PANIC DISORDER
     Dosage: PO
     Route: 048
     Dates: start: 20100501, end: 20100601

REACTIONS (6)
  - ABDOMINAL DISCOMFORT [None]
  - CHEST DISCOMFORT [None]
  - NIGHTMARE [None]
  - OEDEMA [None]
  - ORAL DISCOMFORT [None]
  - WEIGHT INCREASED [None]
